FAERS Safety Report 10640179 (Version 1)
Quarter: 2014Q4

REPORT INFORMATION
  Report Type: Spontaneous
  Country: US (occurrence: None)
  Receive Date: 20141205
  Receipt Date: 20141205
  Transmission Date: 20150529
  Serious: No
  Sender: FDA-Public Use
  Company Number: None

PATIENT
  Age: 65 Year
  Sex: Male

DRUGS (1)
  1. CLOFARABINE [Suspect]
     Active Substance: CLOFARABINE

REACTIONS (12)
  - Fungaemia [None]
  - Acute respiratory failure [None]
  - Acute kidney injury [None]
  - Swelling face [None]
  - Transaminases increased [None]
  - Dental caries [None]
  - Tenderness [None]
  - Systemic candida [None]
  - Eye swelling [None]
  - Febrile neutropenia [None]
  - Bacterial infection [None]
  - Leukaemia [None]

NARRATIVE: CASE EVENT DATE: 20140912
